FAERS Safety Report 12430156 (Version 1)
Quarter: 2016Q2

REPORT INFORMATION
  Report Type: Spontaneous
  Country: US (occurrence: US)
  Receive Date: 20160602
  Receipt Date: 20160602
  Transmission Date: 20160815
  Serious: No
  Sender: FDA-Public Use
  Company Number: US-DSJP-DSU-2015-117576

PATIENT
  Age: 53 Year
  Sex: Female

DRUGS (3)
  1. UNKNOWN GENERIC MEDICATIONS [Concomitant]
     Indication: HYPERTENSION
     Dosage: UNK
  2. BENICAR [Suspect]
     Active Substance: OLMESARTAN MEDOXOMIL
     Indication: HYPERTENSION
     Dosage: 20 MG, UNK
     Route: 048
  3. BENICAR [Suspect]
     Active Substance: OLMESARTAN MEDOXOMIL
     Dosage: 1/4 TH OF 20 MG TABLET, UNK
     Route: 048

REACTIONS (2)
  - Drug administration error [Unknown]
  - Therapeutic response decreased [Unknown]
